FAERS Safety Report 9552007 (Version 1)
Quarter: 2013Q3

REPORT INFORMATION
  Report Type: Spontaneous
  Country: US (occurrence: None)
  Receive Date: 20130724
  Receipt Date: 20130724
  Transmission Date: 20140515
  Serious: Yes (Other)
  Sender: FDA-Public Use
  Company Number: PHEH2013US002551

PATIENT
  Sex: Female

DRUGS (12)
  1. GLEEVEC [Suspect]
     Indication: LEUKAEMIA
     Route: 048
     Dates: start: 201211
  2. MVI (VITAMINS NOS) [Concomitant]
  3. BUMETANIDE [Concomitant]
  4. CLARITIN (LORATADINE) [Concomitant]
  5. SOMA (CARISOPRODOL) [Concomitant]
  6. VICODIN (HYDROCODONE BITARTRATE, PARCETAMOL) [Concomitant]
  7. NEXIUM/ESOMEPRAZOLE SODIUM [Concomitant]
  8. FLONASE (FLUTICASONE PROPIONATE) [Concomitant]
  9. DOXYCYCLINE [Concomitant]
  10. VITAMINC (ASCORBIC ACID) [Concomitant]
  11. HYDROXYCHLOROQUINE [Concomitant]
  12. SYNTHROID (LEVOTHYROXINE SODIUM) [Concomitant]

REACTIONS (1)
  - Pneumonia [None]
